FAERS Safety Report 20991695 (Version 1)
Quarter: 2022Q2

REPORT INFORMATION
  Report Type: Spontaneous
  Country: US (occurrence: US)
  Receive Date: 20220622
  Receipt Date: 20220622
  Transmission Date: 20220721
  Serious: Yes (Other)
  Sender: FDA-Public Use
  Company Number: US-STRIDES ARCOLAB LIMITED-2022SP007497

PATIENT
  Age: 35 Month
  Sex: Female

DRUGS (4)
  1. TACROLIMUS [Suspect]
     Active Substance: TACROLIMUS
     Indication: Nephrotic syndrome
     Dosage: UNK, PRODUCT START DATE:20-AUG-2019. AFTER DOSE INCREASE DYSTONIC REACTION OCCURED
     Route: 065
     Dates: end: 2020
  2. TACROLIMUS [Suspect]
     Active Substance: TACROLIMUS
     Dosage: UNK, DOSE INCREASED
     Route: 065
  3. PREDNISOLONE [Suspect]
     Active Substance: PREDNISOLONE
     Indication: Nephrotic syndrome
     Dosage: UNK, TAPER FOR A TOTAL OF 6 WEEKS
     Route: 048
     Dates: start: 201812
  4. PREDNISOLONE [Suspect]
     Active Substance: PREDNISOLONE
     Dosage: UNK, RE-INITIATION
     Route: 065

REACTIONS (4)
  - Dystonia [Recovered/Resolved]
  - Upper respiratory tract infection [Unknown]
  - Drug dependence [Unknown]
  - Off label use [Unknown]

NARRATIVE: CASE EVENT DATE: 20190101
